FAERS Safety Report 20509934 (Version 1)
Quarter: 2022Q1

REPORT INFORMATION
  Report Type: Spontaneous
  Country: FR (occurrence: FR)
  Receive Date: 20220224
  Receipt Date: 20220224
  Transmission Date: 20220424
  Serious: Yes (Other)
  Sender: FDA-Public Use
  Company Number: FR-MLMSERVICE-20220211-3363987-1

PATIENT
  Age: 51 Year
  Sex: Female

DRUGS (7)
  1. DOXORUBICIN [Suspect]
     Active Substance: DOXORUBICIN
     Indication: Anaplastic large-cell lymphoma
     Dosage: UNK
     Route: 065
  2. PREDNISONE [Suspect]
     Active Substance: PREDNISONE
     Indication: Anaplastic large-cell lymphoma
     Dosage: UNK
     Route: 065
  3. VINDESINE [Suspect]
     Active Substance: VINDESINE
     Indication: Anaplastic large-cell lymphoma
     Dosage: UNK
     Route: 065
  4. VINCRISTINE [Suspect]
     Active Substance: VINCRISTINE
     Indication: Anaplastic large-cell lymphoma
     Dosage: UNK
     Route: 065
  5. CYCLOPHOSPHAMIDE [Suspect]
     Active Substance: CYCLOPHOSPHAMIDE
     Indication: Anaplastic large-cell lymphoma
     Dosage: UNK
     Route: 065
  6. BRENTUXIMAB [Suspect]
     Active Substance: BRENTUXIMAB
     Indication: Anaplastic large-cell lymphoma
     Dosage: UNK
     Route: 065
  7. BENDAMUSTINE [Suspect]
     Active Substance: BENDAMUSTINE
     Indication: Anaplastic large-cell lymphoma
     Dosage: UNK
     Route: 065

REACTIONS (1)
  - Aplasia [Unknown]
